FAERS Safety Report 18653664 (Version 1)
Quarter: 2020Q4

REPORT INFORMATION
  Report Type: Spontaneous
  Country: US (occurrence: US)
  Receive Date: 20201222
  Receipt Date: 20201222
  Transmission Date: 20210114
  Serious: Yes (Other)
  Sender: FDA-Public Use
  Company Number: None

PATIENT
  Age: 40 Year
  Sex: Female
  Weight: 65.32 kg

DRUGS (18)
  1. TIZANIDINE. [Concomitant]
     Active Substance: TIZANIDINE
  2. PROVIGIL [Concomitant]
     Active Substance: MODAFINIL
  3. FIORICET [Concomitant]
     Active Substance: ACETAMINOPHEN\BUTALBITAL\CAFFEINE
  4. BUPRENORPHINE. [Suspect]
     Active Substance: BUPRENORPHINE
     Indication: FIBROMYALGIA
     Dosage: ?          OTHER STRENGTH:15MCG/HR;?
     Route: 062
     Dates: start: 20200410, end: 20200510
  5. NALTREXONE COMPOUND [Concomitant]
  6. ROBAXIN [Concomitant]
     Active Substance: METHOCARBAMOL
  7. EFFEXOR [Concomitant]
     Active Substance: VENLAFAXINE HYDROCHLORIDE
  8. BUPRENORPHINE. [Suspect]
     Active Substance: BUPRENORPHINE
     Indication: BACK PAIN
     Dosage: ?          OTHER STRENGTH:15MCG/HR;?
     Route: 062
     Dates: start: 20200724, end: 20200824
  9. CYMBALTA [Concomitant]
     Active Substance: DULOXETINE HYDROCHLORIDE
     Dates: start: 2010, end: 2020
  10. AMITRIPTYLINE [Concomitant]
     Active Substance: AMITRIPTYLINE
  11. FLEXERIL [Concomitant]
     Active Substance: CYCLOBENZAPRINE HYDROCHLORIDE
  12. MORPHINE SULPHATEER [Concomitant]
  13. FENTYNL PATCHES [Concomitant]
  14. VOLTAREN [Concomitant]
     Active Substance: DICLOFENAC SODIUM
  15. LYRICA [Concomitant]
     Active Substance: PREGABALIN
  16. MELOXICAM. [Concomitant]
     Active Substance: MELOXICAM
  17. WELLBUTRIN [Concomitant]
     Active Substance: BUPROPION HYDROCHLORIDE
  18. LIDODERM [Concomitant]
     Active Substance: LIDOCAINE

REACTIONS (9)
  - Product substitution issue [None]
  - Application site pruritus [None]
  - Application site vesicles [None]
  - Application site erythema [None]
  - Skin exfoliation [None]
  - Urticaria [None]
  - Application site swelling [None]
  - Application site irritation [None]
  - Application site rash [None]

NARRATIVE: CASE EVENT DATE: 20200410
